FAERS Safety Report 5455645-7 (Version None)
Quarter: 2007Q3

REPORT INFORMATION
  Report Type: 
  Country: None (occurrence: None)
  Receive Date: 20070914
  Receipt Date: 20070906
  Transmission Date: 20080115
  Serious: Yes (Hospitalization)
  Sender: FDA-Public Use
  Company Number: 2007RL000398

PATIENT
  Age: 54 Year
  Sex: Female

DRUGS (2)
  1. LOVAZA [Suspect]
     Indication: DRUG USE FOR UNKNOWN INDICATION
     Dosage: 2 MG; BID; PO
     Route: 048
     Dates: start: 20060101, end: 20060501
  2. LOVAZA [Suspect]
     Indication: DRUG USE FOR UNKNOWN INDICATION
     Dosage: 2 MG; BID; PO
     Route: 048
     Dates: start: 20060501

REACTIONS (2)
  - HYPOMAGNESAEMIA [None]
  - POST PROCEDURAL COMPLICATION [None]
